FAERS Safety Report 7827308-1 (Version None)
Quarter: 2011Q4

REPORT INFORMATION
  Report Type: 
  Country: None (occurrence: None)
  Receive Date: 20111020
  Receipt Date: 20111017
  Transmission Date: 20120403
  Serious: Yes (Other)
  Sender: FDA-Public Use
  Company Number: US-PFIZER INC-2010056359

PATIENT
  Sex: Female
  Weight: 40.816 kg

DRUGS (4)
  1. XALATAN [Suspect]
     Route: 047
  2. COZAAR [Concomitant]
     Indication: HYPERTENSION
     Dosage: UNK
  3. LATANOPROST [Suspect]
     Indication: INTRAOCULAR PRESSURE INCREASED
     Dosage: UNK, 1X/DAY
     Route: 047
     Dates: start: 20110501, end: 20110801
  4. XALATAN [Suspect]
     Indication: INTRAOCULAR PRESSURE INCREASED
     Dosage: UNK

REACTIONS (3)
  - INTRAOCULAR PRESSURE INCREASED [None]
  - DRUG INEFFECTIVE [None]
  - EYE IRRITATION [None]
